FAERS Safety Report 5324582-0 (Version None)
Quarter: 2007Q2

REPORT INFORMATION
  Report Type: 
  Country: None (occurrence: None)
  Receive Date: 20070514
  Receipt Date: 20070503
  Transmission Date: 20071010
  Serious: Yes (Death, Hospitalization, Other)
  Sender: FDA-Public Use
  Company Number: US-PFIZER INC-2007036935

PATIENT
  Sex: Female

DRUGS (4)
  1. NEURONTIN [Suspect]
  2. MAVIK [Concomitant]
  3. TRIAMTERENE AND HYDROCHLOROTHIAZID ^HARRIS^ [Concomitant]
     Dosage: TEXT:37.5/25 MG
  4. IRON [Concomitant]

REACTIONS (3)
  - APHASIA [None]
  - DEATH [None]
  - HEMIPARESIS [None]
